FAERS Safety Report 7632509-1 (Version None)
Quarter: 2011Q3

REPORT INFORMATION
  Report Type: 
  Country: None (occurrence: None)
  Receive Date: 20110725
  Receipt Date: 20100927
  Transmission Date: 20111222
  Serious: No
  Sender: FDA-Public Use
  Company Number: US-BRISTOL-MYERS SQUIBB COMPANY-15306384

PATIENT
  Age: 75 Year
  Sex: Male
  Weight: 89 kg

DRUGS (15)
  1. COLCHICINE [Concomitant]
  2. DOXAZOSIN MESYLATE [Concomitant]
  3. FLOVENT [Concomitant]
     Route: 055
  4. PROAIR HFA [Concomitant]
     Route: 055
  5. LEVOTHYROXINE SODIUM [Concomitant]
  6. FUROSEMIDE [Concomitant]
  7. LANOXIN [Concomitant]
  8. METOLAZONE [Concomitant]
  9. COUMADIN [Suspect]
     Dosage: 30 OR 40 YRS
  10. GLIPIZIDE [Concomitant]
     Dosage: GLIPIZIDE XL
  11. PANTOPRAZOLE [Concomitant]
  12. POTASSIUM [Concomitant]
  13. SPIRONOLACTONE [Concomitant]
  14. CLINDAMYCIN [Concomitant]
  15. MUPIROCIN [Concomitant]

REACTIONS (1)
  - EPISTAXIS [None]
